FAERS Safety Report 25070299 (Version 1)
Quarter: 2025Q1

REPORT INFORMATION
  Report Type: Spontaneous
  Country: US (occurrence: US)
  Receive Date: 20250312
  Receipt Date: 20250312
  Transmission Date: 20250409
  Serious: Yes (Hospitalization)
  Sender: PFIZER
  Company Number: US-PFIZER INC-202500054000

PATIENT
  Sex: Female

DRUGS (2)
  1. BRAFTOVI [Suspect]
     Active Substance: ENCORAFENIB
     Indication: Non-small cell lung cancer
  2. MEKTOVI [Suspect]
     Active Substance: BINIMETINIB
     Indication: Non-small cell lung cancer

REACTIONS (1)
  - Pyrexia [Unknown]
